FAERS Safety Report 23614949 (Version 1)
Quarter: 2024Q1

REPORT INFORMATION
  Report Type: Spontaneous
  Country: CN (occurrence: CN)
  Receive Date: 20240311
  Receipt Date: 20240311
  Transmission Date: 20240410
  Serious: Yes (Other)
  Sender: FDA-Public Use
  Company Number: CN-Merck Healthcare KGaA-2024011891

PATIENT
  Age: 29 Year
  Sex: Female
  Weight: 47 kg

DRUGS (5)
  1. OVIDREL [Suspect]
     Active Substance: CHORIOGONADOTROPIN ALFA
     Indication: In vitro fertilisation
     Route: 058
     Dates: start: 20240117, end: 20240117
  2. OVIDREL [Suspect]
     Active Substance: CHORIOGONADOTROPIN ALFA
     Indication: Ovulation induction
  3. UROFOLLITROPIN [Suspect]
     Active Substance: UROFOLLITROPIN
     Indication: In vitro fertilisation
     Route: 030
     Dates: start: 20240108, end: 20240114
  4. UROFOLLITROPIN [Suspect]
     Active Substance: UROFOLLITROPIN
     Indication: Ovulation induction
     Route: 030
     Dates: start: 20240115, end: 20240115
  5. UROFOLLITROPIN [Suspect]
     Active Substance: UROFOLLITROPIN
     Route: 030
     Dates: start: 20240116, end: 20240117

REACTIONS (7)
  - Ovarian hyperstimulation syndrome [Recovering/Resolving]
  - Abdominal distension [Recovering/Resolving]
  - Abdominal pain [Recovering/Resolving]
  - Chest discomfort [Recovering/Resolving]
  - Vomiting [Recovering/Resolving]
  - Asthenia [Recovering/Resolving]
  - Tachypnoea [Recovering/Resolving]

NARRATIVE: CASE EVENT DATE: 20240121
